FAERS Safety Report 4380170-4 (Version None)
Quarter: 2004Q2

REPORT INFORMATION
  Report Type: 
  Country: None (occurrence: None)
  Receive Date: 20040614
  Receipt Date: 20040430
  Transmission Date: 20050107
  Serious: No
  Sender: FDA-Public Use
  Company Number: M04-341-137

PATIENT
  Age: 72 Year
  Sex: Male

DRUGS (6)
  1. VELCADE [Suspect]
     Indication: MULTIPLE MYELOMA
     Dates: start: 20040308, end: 20040427
  2. LANSOPRAZOLE [Concomitant]
  3. MULTI-VITAMINS [Concomitant]
  4. SAW PALMETTO (SERENOA REPENS) [Concomitant]
  5. VITAMIN E [Concomitant]
  6. ZOMETA [Concomitant]

REACTIONS (2)
  - DRUG HYPERSENSITIVITY [None]
  - RASH [None]
